FAERS Safety Report 16729307 (Version 2)
Quarter: 2019Q3

REPORT INFORMATION
  Report Type: Spontaneous
  Country: US (occurrence: US)
  Receive Date: 20190822
  Receipt Date: 20190916
  Transmission Date: 20191005
  Serious: No
  Sender: FDA-Public Use
  Company Number: US-SHIRE-US201927168

PATIENT
  Sex: Female

DRUGS (1)
  1. NATPARA (PARATHYROID HORMONE) [Suspect]
     Active Substance: PARATHYROID HORMONE
     Indication: HYPOPARATHYROIDISM
     Dosage: UNK UNK, 1X/DAY:QD
     Route: 058

REACTIONS (3)
  - Exposure during pregnancy [Not Recovered/Not Resolved]
  - Malabsorption [Unknown]
  - Abdominal discomfort [Unknown]
